FAERS Safety Report 24048145 (Version 5)
Quarter: 2025Q2

REPORT INFORMATION
  Report Type: Report from Study
  Country: JP (occurrence: JP)
  Receive Date: 20240703
  Receipt Date: 20250425
  Transmission Date: 20250717
  Serious: Yes (Death)
  Sender: SHIONOGI
  Company Number: JP-shionogi-202404838_FTR_P_1

PATIENT
  Age: 81 Year
  Sex: Female
  Weight: 45.3 kg

DRUGS (18)
  1. CEFIDEROCOL [Suspect]
     Active Substance: CEFIDEROCOL
     Indication: Pyelonephritis
     Route: 041
     Dates: start: 20240619, end: 20240621
  2. CEFIDEROCOL [Suspect]
     Active Substance: CEFIDEROCOL
     Indication: Rectal ulcer
     Route: 041
     Dates: start: 20240622, end: 20240622
  3. SODIUM CHLORIDE [Concomitant]
     Active Substance: SODIUM CHLORIDE
     Indication: Circulatory collapse
     Route: 065
     Dates: start: 20240619, end: 20240619
  4. SODIUM CHLORIDE [Concomitant]
     Active Substance: SODIUM CHLORIDE
     Indication: Pancreatitis acute
  5. DEXTROSE [Concomitant]
     Active Substance: DEXTROSE MONOHYDRATE
     Indication: Circulatory collapse
     Route: 065
     Dates: start: 20240619, end: 20240619
  6. DEXTROSE [Concomitant]
     Active Substance: DEXTROSE MONOHYDRATE
     Indication: Pancreatitis acute
  7. DAIVITAMIX [Concomitant]
     Indication: Prophylaxis
     Route: 065
     Dates: start: 20240619, end: 20240619
  8. DAIVITAMIX [Concomitant]
     Indication: Circulatory collapse
  9. DAIVITAMIX [Concomitant]
     Indication: Pancreatitis acute
  10. MINOCYCLINE HYDROCHLORIDE [Concomitant]
     Active Substance: MINOCYCLINE HYDROCHLORIDE
     Indication: Pyelonephritis
     Route: 065
     Dates: start: 20240618, end: 20240622
  11. MINOCYCLINE HYDROCHLORIDE [Concomitant]
     Active Substance: MINOCYCLINE HYDROCHLORIDE
     Indication: Rectal ulcer
  12. FOSFOMYCIN NA [Concomitant]
     Indication: Pyelonephritis
     Route: 065
     Dates: start: 20240618, end: 20240619
  13. FOSFOMYCIN NA [Concomitant]
     Indication: Rectal ulcer
  14. MEROPENEM [Concomitant]
     Active Substance: MEROPENEM
     Indication: Pyelonephritis
     Route: 065
     Dates: start: 20240618, end: 20240622
  15. MEROPENEM [Concomitant]
     Active Substance: MEROPENEM
     Indication: Rectal ulcer
  16. ULINASTATIN [Concomitant]
     Active Substance: ULINASTATIN
     Indication: Product used for unknown indication
     Route: 065
     Dates: start: 20240618, end: 20240622
  17. ULINASTATIN [Concomitant]
     Active Substance: ULINASTATIN
     Indication: Circulatory collapse
  18. ULINASTATIN [Concomitant]
     Active Substance: ULINASTATIN
     Indication: Pancreatitis acute

REACTIONS (2)
  - Pancreatitis acute [Fatal]
  - Circulatory collapse [Fatal]

NARRATIVE: CASE EVENT DATE: 20240619
